FAERS Safety Report 8515364-7 (Version None)
Quarter: 2012Q3

REPORT INFORMATION
  Report Type: 
  Country: None (occurrence: None)
  Receive Date: 20120717
  Receipt Date: 20120707
  Transmission Date: 20120928
  Serious: Yes (Other)
  Sender: FDA-Public Use
  Company Number: CA-ELI_LILLY_AND_COMPANY-CA201207003035

PATIENT
  Age: 65 Year
  Sex: Female

DRUGS (16)
  1. FENTANYL [Concomitant]
  2. PROGESTERONE [Concomitant]
  3. VALTREX [Concomitant]
  4. DILAUDID [Concomitant]
  5. PREDNISONE [Concomitant]
  6. FORTEO [Suspect]
     Indication: OSTEOPOROSIS
     Dosage: 20 UG, QD
     Dates: start: 20110625
  7. ESTROGEN [Concomitant]
  8. PREVACID [Concomitant]
  9. ZOFRAN [Concomitant]
  10. DOMPERIDONE [Concomitant]
  11. METHOTREXATE [Concomitant]
  12. CYMBALTA [Concomitant]
  13. IMODIUM [Concomitant]
  14. IMIPRAMINE HCL [Concomitant]
  15. HUMIRA [Concomitant]
  16. ASPIRIN [Concomitant]

REACTIONS (2)
  - FALL [None]
  - ANKLE FRACTURE [None]
